FAERS Safety Report 16995571 (Version 2)
Quarter: 2020Q1

REPORT INFORMATION
  Report Type: Spontaneous
  Country: US (occurrence: US)
  Receive Date: 20191105
  Receipt Date: 20200304
  Transmission Date: 20200409
  Serious: No
  Sender: FDA-Public Use
  Company Number: US-SA-2019SA303392

PATIENT
  Age: 83 Year
  Sex: Female

DRUGS (1)
  1. SOLIQUA 100/33 [Suspect]
     Active Substance: INSULIN GLARGINE\LIXISENATIDE
     Indication: TYPE 1 DIABETES MELLITUS
     Dosage: 44 U, QD
     Route: 065

REACTIONS (4)
  - Wrong technique in device usage process [Unknown]
  - Injection site bruising [Unknown]
  - Device operational issue [Unknown]
  - Needle issue [Unknown]
